FAERS Safety Report 17205676 (Version 1)
Quarter: 2020Q1

REPORT INFORMATION
  Report Type: Spontaneous
  Country: US (occurrence: US)
  Receive Date: 20191226
  Receipt Date: 20191226
  Transmission Date: 20200409
  Serious: No
  Sender: FDA-Public Use
  Company Number: None

PATIENT
  Age: 31 Year
  Sex: Female
  Weight: 77.85 kg

DRUGS (2)
  1. NORETHINDRONE ACETATE. [Concomitant]
     Active Substance: NORETHINDRONE ACETATE
  2. MAGNESIUM OXIDE. [Suspect]
     Active Substance: MAGNESIUM OXIDE
     Indication: PALPITATIONS
     Dosage: ?          QUANTITY:1 TABLET(S);OTHER FREQUENCY:GIVEN IN HOSPITAL;?
     Route: 048
     Dates: start: 20191211, end: 20191211

REACTIONS (1)
  - Dizziness [None]

NARRATIVE: CASE EVENT DATE: 20191211
